FAERS Safety Report 7425792-9 (Version None)
Quarter: 2011Q2

REPORT INFORMATION
  Report Type: 
  Country: None (occurrence: None)
  Receive Date: 20110420
  Receipt Date: 20110407
  Transmission Date: 20111010
  Serious: Yes (Hospitalization)
  Sender: FDA-Public Use
  Company Number: JP-JNJFOC-20110404364

PATIENT
  Age: 7 Decade
  Sex: Female

DRUGS (6)
  1. DUROTEP MT [Suspect]
     Route: 062
  2. GABAPENTIN [Suspect]
     Indication: METASTATIC PAIN
     Route: 065
  3. NORTRIPTYLINE HYDROCHLORIDE [Concomitant]
     Route: 065
  4. DUROTEP MT [Suspect]
     Indication: METASTATIC PAIN
     Route: 062
  5. IFENPRODIL [Suspect]
     Indication: METASTATIC PAIN
     Route: 065
  6. AMITRIPTYLINE [Suspect]
     Indication: METASTATIC PAIN
     Route: 065

REACTIONS (4)
  - HOSPITALISATION [None]
  - HYPOAESTHESIA [None]
  - PAIN IN EXTREMITY [None]
  - INSOMNIA [None]
